FAERS Safety Report 8953313 (Version 1)
Quarter: 2012Q4

REPORT INFORMATION
  Report Type: 
  Country: US (occurrence: US)
  Receive Date: 20121206
  Receipt Date: 20121206
  Transmission Date: 20130627
  Serious: Yes (Hospitalization)
  Sender: FDA-Public Use
  Company Number: US-UCBSA-072296

PATIENT
  Age: 42 Year
  Sex: Male

DRUGS (2)
  1. KEPPRA [Suspect]
     Dates: start: 2012
  2. DILANTIN [Concomitant]
     Indication: CONVULSION

REACTIONS (1)
  - Pancreatitis necrotising [Unknown]
